FAERS Safety Report 21785238 (Version 1)
Quarter: 2022Q4

REPORT INFORMATION
  Report Type: Spontaneous
  Country: FR (occurrence: FR)
  Receive Date: 20221227
  Receipt Date: 20221227
  Transmission Date: 20230113
  Serious: Yes (Death, Hospitalization)
  Sender: FDA-Public Use
  Company Number: FR-ROCHE-2680179

PATIENT
  Sex: Male
  Weight: 47 kg

DRUGS (4)
  1. BEVACIZUMAB [Suspect]
     Active Substance: BEVACIZUMAB
     Indication: Gastric cancer recurrent
     Dosage: 15 MG/KG, EVERY 3 WEEKS
     Route: 042
     Dates: start: 20211227, end: 20221019
  2. TOCILIZUMAB [Suspect]
     Active Substance: TOCILIZUMAB
     Indication: Transplant rejection
     Dosage: 8 MG/KG, FREQ:4 WK
     Route: 042
     Dates: start: 20201228
  3. TOCILIZUMAB [Suspect]
     Active Substance: TOCILIZUMAB
     Indication: Lung transplant
     Dosage: RECEIVED 3 VIALS OF 400 MG AND 3 VIALS OF 80 MG OF ROACTEMRA 20 MG/ML SOLUTION FOR INFUSION FOR A DU
     Route: 042
  4. ATEZOLIZUMAB [Suspect]
     Active Substance: ATEZOLIZUMAB
     Indication: Gastric cancer recurrent
     Dosage: 1200 MG, EVERY 3 WEEKS
     Route: 042
     Dates: start: 20211227, end: 20221019

REACTIONS (4)
  - Pseudomonas bronchitis [Fatal]
  - Bronchitis [Fatal]
  - Intestinal obstruction [Recovered/Resolved]
  - Off label use [Unknown]

NARRATIVE: CASE EVENT DATE: 20221106
